FAERS Safety Report 7368523-3 (Version None)
Quarter: 2011Q1

REPORT INFORMATION
  Report Type: 
  Country: None (occurrence: None)
  Receive Date: 20110323
  Receipt Date: 20110317
  Transmission Date: 20110831
  Serious: Yes (Other)
  Sender: FDA-Public Use
  Company Number: JP-TYCO HEALTHCARE/MALLINCKRODT-T201100624

PATIENT
  Age: 60 Year
  Sex: Female

DRUGS (1)
  1. OPTIRAY 350 [Suspect]
     Indication: COMPUTERISED TOMOGRAM
     Dosage: 100 ML, SINGLE
     Dates: start: 20110316, end: 20110316

REACTIONS (4)
  - PRURITUS [None]
  - PALLOR [None]
  - DYSPNOEA [None]
  - BLOOD PRESSURE DECREASED [None]
